FAERS Safety Report 10182395 (Version 1)
Quarter: 2014Q2

REPORT INFORMATION
  Report Type: Report from Study
  Country: DE (occurrence: DE)
  Receive Date: 20140520
  Receipt Date: 20140520
  Transmission Date: 20141212
  Serious: Yes (Other)
  Sender: FDA-Public Use
  Company Number: DE-ROCHE-1401199

PATIENT
  Sex: Female

DRUGS (5)
  1. OBINUTUZUMAB [Suspect]
     Indication: CHRONIC LYMPHOCYTIC LEUKAEMIA
     Dosage: D1 CYCLE 1
     Route: 042
     Dates: start: 201401
  2. OBINUTUZUMAB [Suspect]
     Dosage: D2 CYCLE 1
     Route: 042
     Dates: start: 201401
  3. PRIVIGEN [Concomitant]
     Indication: CHRONIC LYMPHOCYTIC LEUKAEMIA
     Dosage: ONCE
     Route: 065
     Dates: start: 201004, end: 201004
  4. PRIVIGEN [Concomitant]
     Route: 065
     Dates: start: 2013
  5. BENDAMUSTINE [Concomitant]
     Indication: CHRONIC LYMPHOCYTIC LEUKAEMIA
     Route: 042
     Dates: start: 201401

REACTIONS (4)
  - Cardiovascular disorder [Recovered/Resolved]
  - Dyspnoea [Recovered/Resolved]
  - Infusion related reaction [Recovered/Resolved]
  - Nausea [Recovered/Resolved]
